FAERS Safety Report 9991486 (Version 2)
Quarter: 2014Q1

REPORT INFORMATION
  Report Type: Spontaneous
  Country: US (occurrence: US)
  Receive Date: 20140310
  Receipt Date: 20140312
  Transmission Date: 20141002
  Serious: Yes (Death)
  Sender: FDA-Public Use
  Company Number: US-PFIZER INC-2014067867

PATIENT
  Age: 63 Year
  Sex: Male

DRUGS (1)
  1. RAPAMUNE [Suspect]
     Indication: GRAFT VERSUS HOST DISEASE
     Dosage: 1 MG, 3X/DAY
     Dates: start: 20131211

REACTIONS (2)
  - Graft versus host disease [Fatal]
  - Disease progression [Fatal]
